FAERS Safety Report 18123736 (Version 1)
Quarter: 2020Q3

REPORT INFORMATION
  Report Type: Spontaneous
  Country: US (occurrence: US)
  Receive Date: 20200807
  Receipt Date: 20200807
  Transmission Date: 20201103
  Serious: No
  Sender: FDA-Public Use
  Company Number: None

PATIENT
  Age: 60 Year
  Sex: Male
  Weight: 83.52 kg

DRUGS (12)
  1. TRIAMCINOLONE 0.5% [Concomitant]
     Active Substance: TRIAMCINOLONE
  2. VERAPAMIL 120MG [Concomitant]
  3. ONDANSETRON 8MG [Concomitant]
     Active Substance: ONDANSETRON
  4. HYDROCORTISONE 2.5% [Concomitant]
     Active Substance: HYDROCORTISONE
  5. OXYCODONE 7.5MG [Concomitant]
     Active Substance: OXYCODONE HYDROCHLORIDE
  6. GABAPENTIN. [Concomitant]
     Active Substance: GABAPENTIN
  7. LISINOPRIL 2.5 [Concomitant]
  8. DIPHENHYDRAMINE 1% CREAM [Concomitant]
  9. ALBUTEROL HFA [Concomitant]
     Active Substance: ALBUTEROL SULFATE
  10. SENNA 8.6 [Concomitant]
  11. BRAFTOVI [Suspect]
     Active Substance: ENCORAFENIB
     Route: 048
     Dates: start: 20200123
  12. MEKTOVI [Suspect]
     Active Substance: BINIMETINIB
     Route: 048
     Dates: start: 20200123

REACTIONS (7)
  - Constipation [None]
  - Skin discolouration [None]
  - Vision blurred [None]
  - Insomnia [None]
  - Abdominal tenderness [None]
  - Dizziness [None]
  - Abdominal distension [None]

NARRATIVE: CASE EVENT DATE: 20200807
